FAERS Safety Report 11241891 (Version 1)
Quarter: 2015Q3

REPORT INFORMATION
  Report Type: Spontaneous
  Country: DK (occurrence: DK)
  Receive Date: 20150706
  Receipt Date: 20150706
  Transmission Date: 20151125
  Serious: Yes (Hospitalization)
  Sender: FDA-Public Use
  Company Number: DK-JNJFOC-20150619791

PATIENT
  Age: 40 Year
  Sex: Female

DRUGS (1)
  1. NORETHINDRONE AND ETHINYL ESTRADIOL [Suspect]
     Active Substance: ETHINYL ESTRADIOL\NORETHINDRONE
     Indication: CONTRACEPTION
     Route: 048

REACTIONS (2)
  - Intracranial venous sinus thrombosis [Recovered/Resolved with Sequelae]
  - Physical disability [Recovered/Resolved]

NARRATIVE: CASE EVENT DATE: 20130815
